FAERS Safety Report 4644818-9 (Version None)
Quarter: 2005Q2

REPORT INFORMATION
  Report Type: 
  Country: None (occurrence: None)
  Receive Date: 20050422
  Receipt Date: 20050413
  Transmission Date: 20051028
  Serious: Yes (Other)
  Sender: FDA-Public Use
  Company Number: 2005060548

PATIENT
  Sex: Female

DRUGS (1)
  1. XALATAN [Suspect]
     Indication: ILL-DEFINED DISORDER

REACTIONS (4)
  - CATARACT [None]
  - CORNEAL ULCER [None]
  - KERATITIS [None]
  - POST PROCEDURAL COMPLICATION [None]
